FAERS Safety Report 17354054 (Version 1)
Quarter: 2020Q1

REPORT INFORMATION
  Report Type: Spontaneous
  Country: US (occurrence: US)
  Receive Date: 20200130
  Receipt Date: 20200130
  Transmission Date: 20200409
  Serious: No
  Sender: FDA-Public Use
  Company Number: None

PATIENT
  Age: 5 Year
  Sex: Male

DRUGS (7)
  1. CLONIDINE 0.1MG ER [Concomitant]
  2. PULMOZYME 1MG/ML NEB [Concomitant]
  3. KALYDECO [Suspect]
     Active Substance: IVACAFTOR
     Indication: CYSTIC FIBROSIS
     Route: 048
  4. FLUTICASONE 50MG NS [Concomitant]
  5. CREON 12000 UNITS [Concomitant]
  6. QUILLIVANT XR 25MG/5ML [Concomitant]
  7. CETIRIZINE 1MG/ML SYR [Concomitant]

REACTIONS (2)
  - Therapy cessation [None]
  - Influenza [None]

NARRATIVE: CASE EVENT DATE: 20200124
